FAERS Safety Report 5662762-5 (Version None)
Quarter: 2008Q1

REPORT INFORMATION
  Report Type: 
  Country: None (occurrence: None)
  Receive Date: 20080312
  Receipt Date: 20080305
  Transmission Date: 20080703
  Serious: Yes (Death, Hospitalization)
  Sender: FDA-Public Use
  Company Number: APP200800174

PATIENT
  Age: 55 Year
  Sex: Female
  Weight: 117.9352 kg

DRUGS (1)
  1. HEPARIN SODIUM INJECTION [Suspect]
     Indication: HAEMODIALYSIS
     Dosage: 11000 USP UNITS (DURING DIALYSIS), INTRAVENOUS
     Route: 042
     Dates: start: 20080223, end: 20080223

REACTIONS (6)
  - BRAIN DEATH [None]
  - HYPERHIDROSIS [None]
  - LOSS OF CONSCIOUSNESS [None]
  - RESPIRATORY FAILURE [None]
  - THIRST [None]
  - UNRESPONSIVE TO STIMULI [None]
